FAERS Safety Report 5132040-1 (Version None)
Quarter: 2006Q4

REPORT INFORMATION
  Report Type: 
  Country: None (occurrence: None)
  Receive Date: 20061017
  Receipt Date: 20061004
  Transmission Date: 20070319
  Serious: Yes (Disabling, Other)
  Sender: FDA-Public Use
  Company Number: 2006121681

PATIENT
  Sex: Male
  Weight: 63.5036 kg

DRUGS (1)
  1. XALATAN [Suspect]

REACTIONS (5)
  - BLINDNESS UNILATERAL [None]
  - BLOOD CHOLESTEROL INCREASED [None]
  - BLOOD PRESSURE DIASTOLIC DECREASED [None]
  - OPTIC ISCHAEMIC NEUROPATHY [None]
  - VISUAL ACUITY REDUCED [None]
